FAERS Safety Report 4551554-6 (Version None)
Quarter: 2005Q1

REPORT INFORMATION
  Report Type: 
  Country: None (occurrence: None)
  Receive Date: 20050111
  Receipt Date: 20050105
  Transmission Date: 20050727
  Serious: Yes (Hospitalization)
  Sender: FDA-Public Use
  Company Number: MK200411-0176-1

PATIENT
  Age: 82 Year
  Sex: Female

DRUGS (1)
  1. CONRAY [Suspect]
     Indication: SCAN
     Dosage: 2  ML , ONCE, IT
     Route: 038
     Dates: start: 20041108, end: 20041108

REACTIONS (7)
  - BLADDER SPASM [None]
  - CONTRAST MEDIA REACTION [None]
  - MEDICATION ERROR [None]
  - MUSCLE SPASMS [None]
  - PARAESTHESIA [None]
  - POST PROCEDURAL COMPLICATION [None]
  - URINARY INCONTINENCE [None]
